APPROVED DRUG PRODUCT: CARNITOR
Active Ingredient: LEVOCARNITINE
Strength: 330MG
Dosage Form/Route: TABLET;ORAL
Application: N018948 | Product #001 | TE Code: AB
Applicant: LEADIANT BIOSCIENCES INC
Approved: Dec 27, 1985 | RLD: Yes | RS: Yes | Type: RX